FAERS Safety Report 7823938-1 (Version None)
Quarter: 2011Q4

REPORT INFORMATION
  Report Type: 
  Country: None (occurrence: None)
  Receive Date: 20111018
  Receipt Date: 20111018
  Transmission Date: 20120403
  Serious: Yes (Death)
  Sender: FDA-Public Use
  Company Number: None

PATIENT
  Age: 68 Year
  Sex: Male

DRUGS (9)
  1. LASIX [Concomitant]
  2. LISINOPRIL [Concomitant]
  3. FINASTERIDE [Concomitant]
  4. REVLIMID [Suspect]
     Indication: MULTIPLE MYELOMA
     Dosage: 25MG QDAY ORALLY
     Route: 048
     Dates: start: 20110401, end: 20110901
  5. DIGOXIN [Concomitant]
  6. CARVEDILOL [Concomitant]
  7. PEPCID [Concomitant]
  8. WARFARIN SODIUM [Concomitant]
  9. GABAPENTIN [Concomitant]

REACTIONS (1)
  - SEPSIS [None]
